FAERS Safety Report 18526553 (Version 1)
Quarter: 2020Q4

REPORT INFORMATION
  Report Type: Spontaneous
  Country: US (occurrence: US)
  Receive Date: 20201119
  Receipt Date: 20201119
  Transmission Date: 20210114
  Serious: Yes (Hospitalization)
  Sender: FDA-Public Use
  Company Number: None

PATIENT
  Sex: Male

DRUGS (13)
  1. ESBRIET [Suspect]
     Active Substance: PIRFENIDONE
     Indication: IDIOPATHIC PULMONARY FIBROSIS
     Route: 048
     Dates: start: 20151101
  2. CEFUROXIME. [Concomitant]
     Active Substance: CEFUROXIME
  3. PROPAFENONE. [Concomitant]
     Active Substance: PROPAFENONE
  4. RAMIPRIL. [Concomitant]
     Active Substance: RAMIPRIL
  5. TAMSULOSIN [Concomitant]
     Active Substance: TAMSULOSIN
  6. ASPIRIN EC [Concomitant]
     Active Substance: ASPIRIN
  7. CRESTOR [Concomitant]
     Active Substance: ROSUVASTATIN CALCIUM
  8. CYCLOBENZAPR [Concomitant]
     Active Substance: CYCLOBENZAPRINE
  9. DILTIAZEM ER [Concomitant]
     Active Substance: DILTIAZEM
  10. GABAPENTIN. [Concomitant]
     Active Substance: GABAPENTIN
  11. HYDROCO/APAP [Concomitant]
     Active Substance: ACETAMINOPHEN\HYDROCODONE
  12. ELIQUIS [Concomitant]
     Active Substance: APIXABAN
  13. ZETIA [Concomitant]
     Active Substance: EZETIMIBE

REACTIONS (2)
  - Hip arthroplasty [None]
  - Product dose omission issue [None]
